FAERS Safety Report 12992033 (Version 12)
Quarter: 2018Q1

REPORT INFORMATION
  Report Type: Spontaneous
  Country: US (occurrence: US)
  Receive Date: 20161201
  Receipt Date: 20180201
  Transmission Date: 20180508
  Serious: No
  Sender: FDA-Public Use
  Company Number: US-PFIZER INC-2016558396

PATIENT
  Age: 64 Year
  Sex: Male
  Weight: 136 kg

DRUGS (8)
  1. PREDNISONE. [Concomitant]
     Active Substance: PREDNISONE
     Indication: DYSPNOEA
  2. CAVERJECT IMPULSE [Suspect]
     Active Substance: ALPROSTADIL
     Dosage: 20 MG, UNK
  3. CAVERJECT IMPULSE [Suspect]
     Active Substance: ALPROSTADIL
     Dosage: UNK
  4. CAVERJECT IMPULSE [Suspect]
     Active Substance: ALPROSTADIL
     Dosage: 20 MG, UNK
  5. PREDNISONE. [Concomitant]
     Active Substance: PREDNISONE
     Indication: CHRONIC OBSTRUCTIVE PULMONARY DISEASE
  6. CAVERJECT IMPULSE [Suspect]
     Active Substance: ALPROSTADIL
     Dosage: 20 MG, UNK
  7. CAVERJECT IMPULSE [Suspect]
     Active Substance: ALPROSTADIL
     Indication: PROSTATE CANCER
     Dosage: 20 UG, ONE IN THE BEGINNING OF THE MONTH AND USES THE OTHER ONE AT THE END OF MONTH
  8. CAVERJECT IMPULSE [Suspect]
     Active Substance: ALPROSTADIL
     Dosage: 20 UG, UNK, (QTY 2 / USE AS DIRECTED KIT)

REACTIONS (2)
  - Product quality issue [Unknown]
  - Drug ineffective for unapproved indication [Unknown]
